FAERS Safety Report 13290809 (Version 1)
Quarter: 2017Q1

REPORT INFORMATION
  Report Type: Report from Study
  Country: None (occurrence: US)
  Receive Date: 20170302
  Receipt Date: 20170302
  Transmission Date: 20170428
  Serious: Yes (Hospitalization)
  Sender: FDA-Public Use
  Company Number: US-ABBVIE-17K-163-1835117-00

PATIENT
  Age: 63 Year
  Sex: Female

DRUGS (1)
  1. HUMIRA [Suspect]
     Active Substance: ADALIMUMAB
     Indication: RHEUMATOID ARTHRITIS
     Route: 058
     Dates: start: 20161012

REACTIONS (6)
  - Pneumothorax [Recovering/Resolving]
  - Influenza [Recovering/Resolving]
  - Oral candidiasis [Not Recovered/Not Resolved]
  - Chest pain [Not Recovered/Not Resolved]
  - Sepsis [Recovering/Resolving]
  - Histoplasmosis [Recovering/Resolving]

NARRATIVE: CASE EVENT DATE: 201701
